FAERS Safety Report 23511627 (Version 2)
Quarter: 2024Q1

REPORT INFORMATION
  Report Type: Other
  Country: US (occurrence: None)
  Receive Date: 20240212
  Receipt Date: 20240314
  Transmission Date: 20240409
  Serious: Yes (Other)
  Sender: FDA-Public Use
  Company Number: US-ROCHE-3501314

PATIENT
  Age: 82 Year
  Sex: Female

DRUGS (2)
  1. ESBRIET [Suspect]
     Active Substance: PIRFENIDONE
     Indication: Pulmonary fibrosis
     Dosage: TAKE 3 TABLET(S) BY MOUTH 3 TIMES A DAY WITH MEALS
     Route: 048
  2. ESBRIET [Suspect]
     Active Substance: PIRFENIDONE
     Indication: Interstitial lung disease

REACTIONS (6)
  - Coronary artery occlusion [Unknown]
  - Hepatic function abnormal [Unknown]
  - Hepatic cirrhosis [Unknown]
  - Liver injury [Unknown]
  - COVID-19 [Unknown]
  - Hepatic enzyme increased [Unknown]
